FAERS Safety Report 8323202-0 (Version None)
Quarter: 2012Q2

REPORT INFORMATION
  Report Type: 
  Country: None (occurrence: None)
  Receive Date: 20120430
  Receipt Date: 20120425
  Transmission Date: 20120825
  Serious: Yes (Hospitalization)
  Sender: FDA-Public Use
  Company Number: FR-GILEAD-2012-0054184

PATIENT
  Age: 41 Year
  Sex: Female

DRUGS (6)
  1. TRUVADA [Suspect]
     Indication: ACQUIRED IMMUNODEFICIENCY SYNDROME
     Dosage: 1 DF, UNK
     Route: 048
     Dates: start: 20120224, end: 20120301
  2. NORVIR [Suspect]
     Indication: ACQUIRED IMMUNODEFICIENCY SYNDROME
     Dosage: 1 DF, UNK
     Route: 048
     Dates: start: 20120224, end: 20120301
  3. PENTACARINAT [Suspect]
     Indication: PNEUMOCYSTIS JIROVECI PNEUMONIA
     Dosage: 300 MG, UNK
     Route: 042
     Dates: start: 20120217, end: 20120301
  4. PREZISTA [Suspect]
     Indication: ACQUIRED IMMUNODEFICIENCY SYNDROME
     Dosage: 1 DF, BID
     Route: 048
     Dates: start: 20120224, end: 20120301
  5. PRIMPERAN TAB [Concomitant]
  6. FUNGIZONE [Concomitant]

REACTIONS (1)
  - NEUTROPENIA [None]
